FAERS Safety Report 4480183-8 (Version None)
Quarter: 2004Q4

REPORT INFORMATION
  Report Type: 
  Country: None (occurrence: None)
  Receive Date: 20041018
  Receipt Date: 20041007
  Transmission Date: 20050328
  Serious: Yes (Hospitalization)
  Sender: FDA-Public Use
  Company Number: STA-AE-04-MTX-405

PATIENT
  Age: 60 Year
  Sex: Female

DRUGS (3)
  1. RHEUMATREX [Suspect]
     Indication: RHEUMATOID ARTHRITIS
     Dosage: 4 MG 1X PER 1 WK, ORAL
     Route: 048
     Dates: start: 20040501, end: 20040809
  2. DEXAMETHASONE [Concomitant]
  3. ESTROGEN NOS (ESTROGEN NOS) [Concomitant]

REACTIONS (4)
  - INTERSTITIAL LUNG DISEASE [None]
  - NASOPHARYNGITIS [None]
  - RESPIRATORY FAILURE [None]
  - STOMATITIS [None]
